FAERS Safety Report 6176494-0 (Version None)
Quarter: 2009Q2

REPORT INFORMATION
  Report Type: 
  Country: None (occurrence: None)
  Receive Date: 20090501
  Receipt Date: 20090424
  Transmission Date: 20091009
  Serious: Yes (Other)
  Sender: FDA-Public Use
  Company Number: PHEH2007US15448

PATIENT
  Sex: Female
  Weight: 97.052 kg

DRUGS (1)
  1. ZOMETA [Suspect]

REACTIONS (11)
  - ANHEDONIA [None]
  - ANXIETY [None]
  - BACK PAIN [None]
  - HYPOTHYROIDISM [None]
  - INJURY [None]
  - INTERVERTEBRAL DISC PROTRUSION [None]
  - OSTEOARTHRITIS [None]
  - OSTEONECROSIS [None]
  - OSTEOPENIA [None]
  - PAIN [None]
  - PAIN IN EXTREMITY [None]
